FAERS Safety Report 8901586 (Version 1)
Quarter: 2012Q4

REPORT INFORMATION
  Report Type: Spontaneous
  Country: GB (occurrence: None)
  Receive Date: 20121105
  Receipt Date: 20121105
  Transmission Date: 20130627
  Serious: Yes (Life-Threatening, Disabling, Other)
  Sender: FDA-Public Use
  Company Number: FK201203250

PATIENT
  Age: 60 Year
  Sex: Female

DRUGS (3)
  1. EPIRUBICIN [Suspect]
     Indication: PRODUCT USED FOR UNKNOWN INDICATION
     Dosage: 1 IN 21 d
     Route: 040
     Dates: start: 20120614
  2. FLUOROURACIL (FLUOROURACIL) [Suspect]
     Indication: PRODUCT USED FOR UNKNOWN INDICATION
     Dosage: 1 IN 21 d,
     Route: 040
     Dates: start: 20120614
  3. CYCLOPHOSPHAMIDE/CYCLOPHOSPHAMIDE [Suspect]
     Indication: BREAST CANCER
     Dosage: 1 IN 21 D,
     Route: 040
     Dates: start: 20120614

REACTIONS (1)
  - Pulmonary fibrosis [None]
